FAERS Safety Report 24214911 (Version 2)
Quarter: 2024Q4

REPORT INFORMATION
  Report Type: Spontaneous
  Country: CO (occurrence: CO)
  Receive Date: 20240815
  Receipt Date: 20241001
  Transmission Date: 20250114
  Serious: Yes (Other)
  Sender: LUNDBECK
  Company Number: CO-SA-SAC20240321000811

PATIENT

DRUGS (8)
  1. CLOBAZAM [Suspect]
     Active Substance: CLOBAZAM
     Indication: Epilepsy
     Dosage: 20 MG, BID
     Route: 048
     Dates: start: 2017, end: 202312
  2. CLOBAZAM [Suspect]
     Active Substance: CLOBAZAM
     Dosage: 20 MG, BID
     Route: 048
     Dates: end: 202407
  3. CLOBAZAM [Suspect]
     Active Substance: CLOBAZAM
     Dosage: 40 MG, BID (40 MG IN THE MORNING - 40 MG AT NIGHT)
     Route: 048
     Dates: start: 202407
  4. DIVALPROEX SODIUM [Concomitant]
     Active Substance: DIVALPROEX SODIUM
     Indication: Epilepsy
     Dosage: UNK
  5. BRIVARACETAM [Concomitant]
     Active Substance: BRIVARACETAM
     Indication: Epilepsy
     Dosage: 100 MG, BID (50 MG 1 DOSE EVERY 12 HOUR)
     Route: 048
  6. BRIVARACETAM [Concomitant]
     Active Substance: BRIVARACETAM
     Indication: Partial seizures
  7. VALCOTE [VALPROIC ACID] [Concomitant]
     Indication: Epilepsy
     Dosage: 1 G, BID
     Route: 048
  8. VALCOTE [VALPROIC ACID] [Concomitant]
     Indication: Partial seizures

REACTIONS (6)
  - Epilepsy [Not Recovered/Not Resolved]
  - Petit mal epilepsy [Recovered/Resolved]
  - Treatment failure [Not Recovered/Not Resolved]
  - Product dose omission in error [Not Recovered/Not Resolved]
  - Generalised tonic-clonic seizure [Recovered/Resolved]
  - Vomiting [Recovered/Resolved]

NARRATIVE: CASE EVENT DATE: 20240501
